FAERS Safety Report 8909073 (Version 1)
Quarter: 2012Q4

REPORT INFORMATION
  Report Type: 
  Country: US (occurrence: US)
  Receive Date: 20121114
  Receipt Date: 20121114
  Transmission Date: 20130627
  Serious: Yes (Other)
  Sender: FDA-Public Use
  Company Number: US-BAYER-2012-064621

PATIENT
  Age: 79 Year
  Sex: Female
  Weight: 82.56 kg

DRUGS (8)
  1. XARELTO [Suspect]
     Indication: ATRIAL FIBRILLATION
     Dosage: 20 mg, QD
     Route: 048
     Dates: start: 20120523, end: 20120527
  2. XARELTO [Interacting]
     Indication: CEREBROVASCULAR ACCIDENT PROPHYLAXIS
  3. ACETYLSALICYLIC ACID({=100 MG) [Interacting]
  4. LIPITOR [Concomitant]
  5. LOSARTAN [Concomitant]
  6. PAROXETINE [Concomitant]
  7. OMEPRAZOLE [Concomitant]
  8. TOPROL XL [Concomitant]

REACTIONS (1)
  - Haematuria [Recovered/Resolved]
